FAERS Safety Report 5331557-4 (Version None)
Quarter: 2007Q2

REPORT INFORMATION
  Report Type: 
  Country: None (occurrence: None)
  Receive Date: 20070522
  Receipt Date: 20070516
  Transmission Date: 20071010
  Serious: Yes (Life-Threatening)
  Sender: FDA-Public Use
  Company Number: CN-SHR-CN-2007-017459

PATIENT
  Age: 51 Year
  Sex: Female

DRUGS (1)
  1. ULTRAVIST 370 [Suspect]
     Indication: COMPUTERISED TOMOGRAM ABDOMEN
     Dosage: 100 ML, 1 DOSE
     Route: 040
     Dates: start: 20070512, end: 20070512

REACTIONS (4)
  - FEELING COLD [None]
  - HYPERHIDROSIS [None]
  - SHOCK [None]
  - URINARY INCONTINENCE [None]
